FAERS Safety Report 8443225-0 (Version None)
Quarter: 2012Q2

REPORT INFORMATION
  Report Type: 
  Country: None (occurrence: None)
  Receive Date: 20120617
  Receipt Date: 20120606
  Transmission Date: 20120825
  Serious: Yes (Death, Hospitalization)
  Sender: FDA-Public Use
  Company Number: GB-TEVA-342921ISR

PATIENT
  Sex: Female

DRUGS (20)
  1. LEVOTHYROXINE SODIUM [Concomitant]
     Indication: HYPOTHYROIDISM
     Dosage: EACH MORNING
  2. GLICLAZIDE [Concomitant]
     Indication: TYPE 2 DIABETES MELLITUS
     Dosage: HALF TABLET DAILY
     Dates: end: 20120313
  3. ASPIRIN [Concomitant]
     Indication: ARTERIOGRAM CORONARY
     Dosage: 75 MILLIGRAM;
  4. VAGIFEM [Suspect]
     Indication: ATROPHIC VULVOVAGINITIS
     Route: 067
     Dates: start: 20120217
  5. MICROLET LANCETS 0.5MRNL28GAUGE [Concomitant]
     Indication: TYPE 2 DIABETES MELLITUS
     Dosage: 100 LANCET - USE AS DIRECTED
     Dates: end: 20120313
  6. CONTOUR TESTING STRIPS [Concomitant]
     Indication: TYPE 2 DIABETES MELLITUS
     Dosage: USE AS DIERECT
     Dates: end: 20120313
  7. NEBIVOLOL [Concomitant]
     Dosage: 2.5 MILLIGRAM;
  8. NEBIVOLOL [Concomitant]
     Indication: MYOCARDIAL ISCHAEMIA
  9. SIMVASTATIN [Concomitant]
     Indication: TYPE 2 DIABETES MELLITUS
     Dosage: 40 MILLIGRAM; NIGHT
  10. AMITRIPTYLINE HCL [Concomitant]
  11. CLOBETASOL PROPIONATE [Suspect]
     Indication: ATROPHIC VULVOVAGINITIS
     Dosage: 0.05% 1-2- DAILY
     Route: 061
     Dates: start: 20120217
  12. GLICLAZIDE [Concomitant]
     Dosage: 40 MILLIGRAM;
  13. METFORMIN HCL [Concomitant]
     Indication: TYPE 2 DIABETES MELLITUS
     Dosage: 2550 MILLIGRAM;
     Dates: end: 20120313
  14. TRIMETHOPRIM [Suspect]
     Indication: ATROPHIC VULVOVAGINITIS
     Dosage: 400 MILLIGRAM;
     Dates: start: 20120217
  15. FLUOXETINE [Concomitant]
     Indication: FIBROMYALGIA
     Dosage: 40 MILLIGRAM;
     Dates: end: 20120313
  16. MEBEVERINE [Concomitant]
     Indication: TYPE 2 DIABETES MELLITUS
     Dosage: 405 MILLIGRAM;
     Dates: end: 20120313
  17. NITROGLYCERIN [Concomitant]
     Indication: MYOCARDIAL ISCHAEMIA
     Dosage: 1 PUFF AS NEEDED
     Dates: end: 20120313
  18. SALMETEROL 25MICROGRAMS/DOSE INHALER [Concomitant]
     Indication: ASTHMA
     Dosage: 2 DOSES TWICE DAILY
     Route: 055
  19. RAMIPRIL [Concomitant]
     Indication: ESSENTIAL HYPERTENSION
     Dates: end: 20120313
  20. SALBUTAMOL 100 MICROGRAMS DOSE BRAETH ACUATED INHALER CFC FREE [Concomitant]
     Dosage: 2 DOSES AS NEEDED
     Dates: end: 20120313

REACTIONS (25)
  - ESSENTIAL HYPERTENSION [None]
  - DEFAECATION URGENCY [None]
  - SNORING [None]
  - VIITH NERVE PARALYSIS [None]
  - MICTURITION URGENCY [None]
  - VOMITING [None]
  - HYPERTENSIVE CRISIS [None]
  - DYSARTHRIA [None]
  - HEADACHE [None]
  - FACIAL ASYMMETRY [None]
  - FACIAL PARESIS [None]
  - CEREBRAL HAEMORRHAGE [None]
  - FALL [None]
  - CEREBROVASCULAR ACCIDENT [None]
  - PUPILLARY REFLEX IMPAIRED [None]
  - NECK PAIN [None]
  - MUSCLE TWITCHING [None]
  - HYPERTONIA [None]
  - HEMIPARESIS [None]
  - VISUAL FIELD DEFECT [None]
  - MUSCLE RIGIDITY [None]
  - BABINSKI REFLEX TEST [None]
  - SPEECH DISORDER [None]
  - CONVULSION [None]
  - LIMB ASYMMETRY [None]
